FAERS Safety Report 8009962-7 (Version None)
Quarter: 2011Q4

REPORT INFORMATION
  Report Type: 
  Country: None (occurrence: None)
  Receive Date: 20111221
  Receipt Date: 20111214
  Transmission Date: 20120403
  Serious: Yes (Other)
  Sender: FDA-Public Use
  Company Number: CL-363-2011

PATIENT
  Age: 75 Year
  Sex: Female

DRUGS (2)
  1. AMIODARONE HCL [Suspect]
     Indication: SINUS RHYTHM
     Dosage: ORAL ROUTE
     Route: 048
  2. WARFARIN SODIUM [Concomitant]

REACTIONS (4)
  - PULMONARY HYPERTENSION [None]
  - RIGHT VENTRICULAR FAILURE [None]
  - THYROIDITIS [None]
  - HYPERTHYROIDISM [None]
